FAERS Safety Report 10448386 (Version 3)
Quarter: 2018Q3

REPORT INFORMATION
  Report Type: Spontaneous
  Country: US (occurrence: US)
  Receive Date: 20140911
  Receipt Date: 20180824
  Transmission Date: 20181010
  Serious: Yes (Death, Hospitalization, Other)
  Sender: FDA-Public Use
  Company Number: US-ABBVIE-14P-163-1279503-00

PATIENT
  Age: 67 Year
  Sex: Male

DRUGS (1)
  1. ANDROGEL [Suspect]
     Active Substance: TESTOSTERONE
     Indication: BLOOD TESTOSTERONE DECREASED
     Route: 061
     Dates: start: 20120803, end: 201402

REACTIONS (10)
  - Death [Fatal]
  - Economic problem [Unknown]
  - Ischaemic stroke [Unknown]
  - Anhedonia [Unknown]
  - Pain [Unknown]
  - Injury [Unknown]
  - Disability [Unknown]
  - Impaired work ability [Unknown]
  - Emotional distress [Unknown]
  - Anxiety [Unknown]

NARRATIVE: CASE EVENT DATE: 20121208
